FAERS Safety Report 10521994 (Version 2)
Quarter: 2015Q1

REPORT INFORMATION
  Report Type: Spontaneous
  Country: IT (occurrence: None)
  Receive Date: 20141014
  Receipt Date: 20150114
  Transmission Date: 20150720
  Serious: Yes (Hospitalization)
  Sender: FDA-Public Use
  Company Number: IT-2014-3930

PATIENT
  Age: 55 Year
  Sex: Female
  Weight: 49 kg

DRUGS (3)
  1. FLUOROURACILE [Suspect]
     Active Substance: FLUOROURACIL
     Indication: BREAST CANCER STAGE IV
     Route: 042
     Dates: start: 20140916, end: 20140917
  2. NAVELBINE [Suspect]
     Active Substance: VINORELBINE TARTRATE
     Indication: BREAST CANCER STAGE IV
     Dosage: 35 MG, CYCLICAL, INTRAVENOUS
     Route: 042
     Dates: start: 20140916, end: 20140916
  3. LEDERFOLIN (CALCIUM FOLINATE) [Concomitant]

REACTIONS (6)
  - Gastrointestinal hypomotility [None]
  - Muscle contracture [None]
  - Pain [None]
  - Asthenia [None]
  - Areflexia [None]
  - Neurotoxicity [None]

NARRATIVE: CASE EVENT DATE: 20140917
